FAERS Safety Report 24903468 (Version 2)
Quarter: 2025Q2

REPORT INFORMATION
  Report Type: Report from Study
  Country: US (occurrence: US)
  Receive Date: 20250130
  Receipt Date: 20250415
  Transmission Date: 20250717
  Serious: No
  Sender: SUNOVION
  Company Number: US-SMPA-2025SPA000645AA

PATIENT

DRUGS (1)
  1. ORGOVYX [Suspect]
     Active Substance: RELUGOLIX
     Indication: Prostate cancer
     Dosage: 120 MG, QD
     Route: 048
     Dates: start: 20241215

REACTIONS (11)
  - Cough [Unknown]
  - Lethargy [Unknown]
  - Muscle atrophy [Unknown]
  - Disturbance in attention [Unknown]
  - Arthropathy [Unknown]
  - Hypoaesthesia [Unknown]
  - Fatigue [Unknown]
  - Hot flush [Unknown]
  - Insomnia [Unknown]
  - Incorrect dose administered [Unknown]
  - Product dose omission issue [Unknown]
